FAERS Safety Report 4888039-3 (Version None)
Quarter: 2006Q1

REPORT INFORMATION
  Report Type: 
  Country: None (occurrence: None)
  Receive Date: 20060123
  Receipt Date: 20051005
  Transmission Date: 20060701
  Serious: Yes (Hospitalization, Disabling)
  Sender: FDA-Public Use
  Company Number: US-MERCK-0510USA04610

PATIENT
  Age: 48 Year
  Sex: Female
  Weight: 82 kg

DRUGS (3)
  1. VIOXX [Suspect]
     Indication: LOWER LIMB FRACTURE
     Route: 048
     Dates: start: 20030101
  2. IMITREX [Concomitant]
     Route: 065
  3. NORVASC [Concomitant]
     Route: 065

REACTIONS (18)
  - CEREBROVASCULAR DISORDER [None]
  - CHEST PAIN [None]
  - COLONIC POLYP [None]
  - COSTOCHONDRITIS [None]
  - DYSPNOEA [None]
  - GASTRITIS [None]
  - HYPERCHOLESTEROLAEMIA [None]
  - INSOMNIA [None]
  - LABILE HYPERTENSION [None]
  - MIGRAINE [None]
  - MYOCARDIAL INFARCTION [None]
  - NECK MASS [None]
  - PARAESTHESIA [None]
  - RADICULOPATHY [None]
  - TENDONITIS [None]
  - TRANSIENT ISCHAEMIC ATTACK [None]
  - UTERINE LEIOMYOMA [None]
  - VIRAL INFECTION [None]
